APPROVED DRUG PRODUCT: CYCLOBENZAPRINE HYDROCHLORIDE
Active Ingredient: CYCLOBENZAPRINE HYDROCHLORIDE
Strength: 30MG
Dosage Form/Route: CAPSULE, EXTENDED RELEASE;ORAL
Application: A091281 | Product #002 | TE Code: AB
Applicant: TWI PHARMACEUTICALS INC
Approved: Jan 31, 2013 | RLD: No | RS: No | Type: RX